FAERS Safety Report 4367276-0 (Version None)
Quarter: 2004Q2

REPORT INFORMATION
  Report Type: 
  Country: None (occurrence: None)
  Receive Date: 20040524
  Receipt Date: 20040506
  Transmission Date: 20050107
  Serious: Yes (Hospitalization)
  Sender: FDA-Public Use
  Company Number: 197474

PATIENT
  Age: 52 Year
  Sex: Female
  Weight: 63.5036 kg

DRUGS (7)
  1. AVONEX [Suspect]
     Indication: MULTIPLE SCLEROSIS
     Dosage: 30 MCG QW IM
     Route: 030
     Dates: start: 20010101, end: 20021001
  2. AVONEX [Suspect]
     Indication: MULTIPLE SCLEROSIS
     Dosage: 30 MCG QW IM
     Route: 030
     Dates: start: 20021201, end: 20031001
  3. MINOCYCLINE HCL [Concomitant]
  4. EVISTA [Concomitant]
  5. ZOLOFT [Concomitant]
  6. AMBIEN [Concomitant]
  7. MULTIVITAMIN [Concomitant]

REACTIONS (1)
  - SLEEP APNOEA SYNDROME [None]
